FAERS Safety Report 6294486-8 (Version None)
Quarter: 2009Q3

REPORT INFORMATION
  Report Type: 
  Country: None (occurrence: None)
  Receive Date: 20090803
  Receipt Date: 20090728
  Transmission Date: 20100115
  Serious: Yes (Life-Threatening, Hospitalization)
  Sender: FDA-Public Use
  Company Number: CN-ASTRAZENECA-2009SE06028

PATIENT
  Age: 56 Year
  Sex: Male

DRUGS (2)
  1. PROPOFOL [Suspect]
     Indication: ANAESTHESIA
     Route: 042
  2. MIDAZOLAM HCL [Concomitant]
     Indication: SEDATION
     Route: 042

REACTIONS (2)
  - ANAPHYLACTIC REACTION [None]
  - LARYNGEAL OEDEMA [None]
